FAERS Safety Report 8257714-5 (Version None)
Quarter: 2012Q2

REPORT INFORMATION
  Report Type: 
  Country: None (occurrence: None)
  Receive Date: 20120404
  Receipt Date: 20120326
  Transmission Date: 20120825
  Serious: Yes (Hospitalization)
  Sender: FDA-Public Use
  Company Number: US-AMGEN-USASP2012019627

PATIENT
  Age: 76 Year
  Sex: Female

DRUGS (1)
  1. ENBREL [Suspect]
     Indication: RHEUMATOID ARTHRITIS
     Dosage: 50 MG, QWK
     Dates: start: 20110901

REACTIONS (7)
  - BLOOD SODIUM ABNORMAL [None]
  - RHEUMATOID ARTHRITIS [None]
  - HEADACHE [None]
  - DECREASED APPETITE [None]
  - URINARY TRACT INFECTION [None]
  - BLOOD SODIUM DECREASED [None]
  - FEELING ABNORMAL [None]
